FAERS Safety Report 9761248 (Version 3)
Quarter: 2014Q1

REPORT INFORMATION
  Report Type: Spontaneous
  Country: US (occurrence: US)
  Receive Date: 20131216
  Receipt Date: 20140121
  Transmission Date: 20141002
  Serious: No
  Sender: FDA-Public Use
  Company Number: US-009507513-1311USA000466

PATIENT
  Age: 20 Year
  Sex: Female
  Weight: 114.29 kg

DRUGS (2)
  1. NEXPLANON [Suspect]
     Indication: CONTRACEPTION
     Dosage: 68 MG/3 YEARS
     Route: 059
     Dates: start: 20131003, end: 20131003
  2. NEXPLANON [Suspect]
     Dosage: 68 MG/3 YEARS
     Route: 059
     Dates: start: 20131003

REACTIONS (2)
  - Device difficult to use [Recovered/Resolved]
  - No adverse event [Unknown]
